FAERS Safety Report 17401560 (Version 2)
Quarter: 2020Q1

REPORT INFORMATION
  Report Type: Spontaneous
  Country: US (occurrence: US)
  Receive Date: 20200211
  Receipt Date: 20200214
  Transmission Date: 20200409
  Serious: No
  Sender: FDA-Public Use
  Company Number: US-AMGEN-USASP2020020269

PATIENT
  Age: 1 Year
  Sex: Male

DRUGS (1)
  1. ENBREL [Suspect]
     Active Substance: ETANERCEPT
     Indication: ADENOSINE DEAMINASE
     Dosage: 0.6 MILLILITER
     Route: 065
     Dates: start: 201807

REACTIONS (4)
  - Accidental exposure to product [Unknown]
  - Incorrect dose administered by device [Unknown]
  - Off label use [Unknown]
  - Device connection issue [Unknown]

NARRATIVE: CASE EVENT DATE: 201807
